FAERS Safety Report 9162038 (Version 1)
Quarter: 2013Q1

REPORT INFORMATION
  Report Type: Spontaneous
  Country: US (occurrence: None)
  Receive Date: 20130225
  Receipt Date: 20130225
  Transmission Date: 20140127
  Serious: Yes (Hospitalization, Other)
  Sender: FDA-Public Use
  Company Number: USA/USA/13/0028167

PATIENT
  Age: 22 Year
  Sex: Female

DRUGS (9)
  1. FLUCONAZOLE [Suspect]
     Indication: CANDIDA INFECTION
     Dosage: 1 D
     Route: 048
  2. AMOXICILLIN [Suspect]
     Indication: PRODUCT USED FOR UNKNOWN INDICATION
     Route: 048
  3. TERCONAZOLE [Suspect]
     Indication: PRODUCT USED FOR UNKNOWN INDICATION
     Route: 067
  4. AMPICILLIN [Suspect]
     Indication: PRODUCT USED FOR UNKNOWN INDICATION
     Dosage: (NOT OTHERWISE SPECIFIED)
     Route: 042
  5. GENTAMICIN [Suspect]
     Indication: PRODUCT USED FOR UNKNOWN INDICATION
  6. CEFAZOLIN [Suspect]
     Indication: AMNIOTIC CAVITY INFECTION
  7. CLOTRIMAZOLE [Suspect]
     Indication: CANDIDA INFECTION
     Route: 067
  8. AZITHROMYCIN (AZITHROMYCIN) [Suspect]
     Indication: PRODUCT USED FOR UNKNOWN INDICATION
     Dosage: (NOT OTHERWISE SPECIFIED)
     Route: 042
  9. FLUCONAZOLE [Suspect]
     Indication: CANDIDA INFECTION
     Dosage: (NOT OTHERWISE SPECIFIED)
     Route: 042

REACTIONS (5)
  - Premature rupture of membranes [None]
  - Premature separation of placenta [None]
  - Caesarean section [None]
  - Premature labour [None]
  - Maternal exposure during pregnancy [None]
